FAERS Safety Report 9128704 (Version 2)
Quarter: 2013Q3

REPORT INFORMATION
  Report Type: Report from Study
  Country: US (occurrence: US)
  Receive Date: 20130228
  Receipt Date: 20130828
  Transmission Date: 20140515
  Serious: No
  Sender: FDA-Public Use
  Company Number: US-ABBOTT-13P-163-1043314-00

PATIENT
  Age: 33 Year
  Sex: Male
  Weight: 95.34 kg

DRUGS (2)
  1. ANDROGEL [Suspect]
     Indication: ANDROGEN DEFICIENCY
     Dosage: 2 PUMPS
     Route: 061
     Dates: start: 2012
  2. ANDROGEL [Suspect]
     Indication: ANDROGEN DEFICIENCY
     Dosage: UNKNOWN
     Route: 061
     Dates: start: 2011, end: 2012

REACTIONS (5)
  - Hypoaesthesia [Recovered/Resolved]
  - Mobility decreased [Recovered/Resolved]
  - Hemiparesis [Recovered/Resolved]
  - Pain in extremity [Recovered/Resolved]
  - Cervical radiculopathy [Recovered/Resolved]
